FAERS Safety Report 9190582 (Version 1)
Quarter: 2013Q1

REPORT INFORMATION
  Report Type: Spontaneous
  Country: GB (occurrence: GB)
  Receive Date: 20130326
  Receipt Date: 20130326
  Transmission Date: 20140127
  Serious: Yes (Other)
  Sender: FDA-Public Use
  Company Number: GB-TEVA-393141ISR

PATIENT
  Age: 50 Year
  Sex: Female
  Weight: 54.88 kg

DRUGS (3)
  1. DICLOFENAC [Suspect]
     Indication: BACK PAIN
     Route: 048
  2. TAMOXIFEN [Concomitant]
  3. OMEPRAZOLE [Concomitant]

REACTIONS (2)
  - Bone pain [Not Recovered/Not Resolved]
  - Pain in extremity [Not Recovered/Not Resolved]
